FAERS Safety Report 17573945 (Version 1)
Quarter: 2020Q1

REPORT INFORMATION
  Report Type: Report from Study
  Country: CA (occurrence: CA)
  Receive Date: 20200323
  Receipt Date: 20200323
  Transmission Date: 20200409
  Serious: Yes (Other)
  Sender: FDA-Public Use
  Company Number: CA-BAUSCH-BL-2020-008199

PATIENT
  Age: 79 Year
  Sex: Male

DRUGS (1)
  1. VYZULTA [Suspect]
     Active Substance: LATANOPROSTENE BUNOD
     Indication: OPEN ANGLE GLAUCOMA
     Dosage: ONE DROP
     Route: 047
     Dates: start: 20191204, end: 20200128

REACTIONS (1)
  - Facial paralysis [Unknown]
